FAERS Safety Report 8143779-8 (Version None)
Quarter: 2012Q1

REPORT INFORMATION
  Report Type: 
  Country: None (occurrence: None)
  Receive Date: 20120217
  Receipt Date: 20120213
  Transmission Date: 20120608
  Serious: No
  Sender: FDA-Public Use
  Company Number: US-PFIZER INC-2012038954

PATIENT
  Sex: Female
  Weight: 62.132 kg

DRUGS (3)
  1. FIORICET [Concomitant]
     Dosage: UNK
  2. POTASSIUM PENICILLIN G [Suspect]
     Dosage: UNK
     Route: 030
  3. ANTIVERT [Suspect]
     Indication: VERTIGO
     Dosage: 25 MG, 1X/DAY
     Route: 048

REACTIONS (1)
  - DRUG HYPERSENSITIVITY [None]
